FAERS Safety Report 5340175-3 (Version None)
Quarter: 2007Q2

REPORT INFORMATION
  Report Type: 
  Country: None (occurrence: None)
  Receive Date: 20070524
  Receipt Date: 20070514
  Transmission Date: 20071010
  Serious: Yes (Life-Threatening, Hospitalization, Other)
  Sender: FDA-Public Use
  Company Number: WAES 0705FRA00021

PATIENT
  Age: 66 Year
  Sex: Male

DRUGS (12)
  1. CAP VORINOSTAT 300 MG [Suspect]
     Indication: NON-SMALL CELL LUNG CANCER
     Dosage: 300 MG/DAILY/PO
     Route: 048
     Dates: start: 20070502, end: 20070508
  2. CISPLATIN [Suspect]
     Indication: NON-SMALL CELL LUNG CANCER
     Dosage: IV
     Route: 042
     Dates: start: 20070504, end: 20070504
  3. INJ GEMCITABINE [Suspect]
     Indication: NON-SMALL CELL LUNG CANCER
     Dosage: IV
     Route: 042
     Dates: start: 20070504, end: 20070504
  4. INJ GEMCITABINE [Suspect]
     Indication: NON-SMALL CELL LUNG CANCER
     Dosage: IV
     Route: 042
     Dates: start: 20070516, end: 20070516
  5. BENFLUOREX HYDROCHLORIDE [Concomitant]
  6. CLOPIDOGREL BISULFATE [Concomitant]
  7. DILTIAZEM HYDROCHLORIDE [Concomitant]
  8. NITROGLYCERIN [Concomitant]
  9. PAROXETINE HYDROCHLORIDE [Concomitant]
  10. TRAMADOL HCL [Concomitant]
  11. ZOLPIDEM TARTRATE [Concomitant]
  12. ZETIA [Concomitant]

REACTIONS (18)
  - ANAEMIA [None]
  - ANOREXIA [None]
  - BLOOD POTASSIUM DECREASED [None]
  - CARDIAC FAILURE [None]
  - CARDIAC TAMPONADE [None]
  - DEHYDRATION [None]
  - DYSPNOEA AT REST [None]
  - HYPERGLYCAEMIA [None]
  - NEOPLASM PROGRESSION [None]
  - PERICARDITIS [None]
  - PLATELET COUNT INCREASED [None]
  - PULMONARY EMBOLISM [None]
  - RENAL FAILURE [None]
  - RESPIRATORY FAILURE [None]
  - RIGHT VENTRICULAR FAILURE [None]
  - SUPERIOR VENA CAVAL OCCLUSION [None]
  - THROMBOCYTOPENIA [None]
  - VENA CAVA THROMBOSIS [None]
